FAERS Safety Report 22017462 (Version 1)
Quarter: 2023Q1

REPORT INFORMATION
  Report Type: Spontaneous
  Country: JP (occurrence: JP)
  Receive Date: 20230221
  Receipt Date: 20230221
  Transmission Date: 20230417
  Serious: Yes (Other)
  Sender: FDA-Public Use
  Company Number: JP-PFM-2023-01006

PATIENT

DRUGS (7)
  1. PROPRANOLOL [Suspect]
     Active Substance: PROPRANOLOL HYDROCHLORIDE
     Indication: Supraventricular tachycardia
     Dosage: UNK
     Route: 065
  2. PROPRANOLOL [Suspect]
     Active Substance: PROPRANOLOL HYDROCHLORIDE
     Indication: Supraventricular extrasystoles
     Dosage: UNK
     Route: 065
  3. PROPRANOLOL [Suspect]
     Active Substance: PROPRANOLOL HYDROCHLORIDE
     Indication: Electrocardiogram abnormal
  4. PROPRANOLOL [Suspect]
     Active Substance: PROPRANOLOL HYDROCHLORIDE
     Indication: Off label use
  5. SOTALOL [Suspect]
     Active Substance: SOTALOL
     Indication: Supraventricular tachycardia
     Dosage: UNK
     Route: 065
  6. SOTALOL [Suspect]
     Active Substance: SOTALOL
     Indication: Supraventricular extrasystoles
  7. SOTALOL [Suspect]
     Active Substance: SOTALOL
     Indication: Electrocardiogram abnormal

REACTIONS (10)
  - Atrial fibrillation [Unknown]
  - Ventricular tachycardia [Unknown]
  - Cardio-respiratory arrest [Unknown]
  - Apnoea [Unknown]
  - Bradycardia [Unknown]
  - Atrial enlargement [Unknown]
  - Ventricular extrasystoles [Unknown]
  - Brain natriuretic peptide increased [Unknown]
  - Drug ineffective for unapproved indication [Unknown]
  - Off label use [Unknown]
